FAERS Safety Report 21575705 (Version 1)
Quarter: 2022Q4

REPORT INFORMATION
  Report Type: Other
  Country: None (occurrence: CN)
  Receive Date: 20221110
  Receipt Date: 20221110
  Transmission Date: 20230113
  Serious: Yes (Other)
  Sender: FDA-Public Use
  Company Number: CN-Jiangsu Hengrui Medicine Co., Ltd.-2134724

PATIENT
  Age: 66 Year
  Sex: Male
  Weight: 55 kg

DRUGS (1)
  1. GADOTERATE MEGLUMINE [Suspect]
     Active Substance: GADOTERATE MEGLUMINE
     Indication: Magnetic resonance imaging
     Route: 042
     Dates: start: 20221014, end: 20221014

REACTIONS (3)
  - Pruritus [Recovering/Resolving]
  - Musculoskeletal stiffness [Recovering/Resolving]
  - Foaming at mouth [Recovering/Resolving]

NARRATIVE: CASE EVENT DATE: 20221014
